FAERS Safety Report 16395392 (Version 1)
Quarter: 2019Q2

REPORT INFORMATION
  Report Type: Spontaneous
  Country: HU (occurrence: HU)
  Receive Date: 20190605
  Receipt Date: 20190605
  Transmission Date: 20190711
  Serious: Yes (Life-Threatening)
  Sender: FDA-Public Use
  Company Number: PHHY2019HU128059

PATIENT
  Sex: Male

DRUGS (8)
  1. HUMAN ALBUMIN [Concomitant]
     Active Substance: ALBUMIN HUMAN
     Indication: FLUID REPLACEMENT
     Dosage: 20 MG, Q12H
     Route: 065
  2. SANDIMMUN NEORAL [Suspect]
     Active Substance: CYCLOSPORINE
     Indication: NEPHROTIC SYNDROME
     Dosage: 75 MG, Q12H
     Route: 048
     Dates: start: 20190419, end: 20190422
  3. MEDROL [Concomitant]
     Active Substance: METHYLPREDNISOLONE
     Indication: NEPHROTIC SYNDROME
     Dosage: 32 MG, Q12H
     Route: 065
  4. FUROSEMID [Concomitant]
     Active Substance: FUROSEMIDE
     Indication: ASCITES
     Dosage: 10 MG, Q6H
     Route: 065
  5. VITAMIN D3 [Concomitant]
     Active Substance: CHOLECALCIFEROL
     Indication: VITAMIN D DECREASED
     Dosage: 1000 IU, QD
     Route: 065
  6. TRITACE [Concomitant]
     Active Substance: RAMIPRIL
     Indication: HYPERTENSION
     Dosage: 2.5 MG, QD
     Route: 065
  7. NOACID [Concomitant]
     Active Substance: ALUMINUM HYDROXIDE
     Indication: GASTRIC ULCER
     Dosage: 20 MG, Q12H
     Route: 065
  8. COSOPT [Concomitant]
     Active Substance: DORZOLAMIDE HYDROCHLORIDE\TIMOLOL MALEATE
     Indication: INTRAOCULAR PRESSURE INCREASED
     Dosage: 1 GTT, Q12H
     Route: 065

REACTIONS (13)
  - Hypertension [Recovered/Resolved]
  - Hypertensive encephalopathy [Recovered/Resolved]
  - Gaze palsy [Recovered/Resolved]
  - Hallucinations, mixed [Recovered/Resolved]
  - Inflammation [Recovered/Resolved]
  - Posterior reversible encephalopathy syndrome [Recovered/Resolved]
  - Cyanosis [Recovered/Resolved]
  - Facial spasm [Recovered/Resolved]
  - Hallucination [Recovered/Resolved]
  - Saliva discolouration [Recovered/Resolved]
  - Generalised tonic-clonic seizure [Recovered/Resolved]
  - Generalised oedema [Recovered/Resolved]
  - Seizure [Recovered/Resolved]

NARRATIVE: CASE EVENT DATE: 20190422
